FAERS Safety Report 11811240 (Version 1)
Quarter: 2015Q4

REPORT INFORMATION
  Report Type: Spontaneous
  Country: CA (occurrence: CA)
  Receive Date: 20151208
  Receipt Date: 20151208
  Transmission Date: 20160305
  Serious: Yes (Other)
  Sender: FDA-Public Use
  Company Number: CA-TEVA-613725ACC

PATIENT
  Age: 64 Year
  Sex: Male
  Weight: 137.11 kg

DRUGS (2)
  1. HYDROCHLOROTHIAZIDE. [Suspect]
     Active Substance: HYDROCHLOROTHIAZIDE
     Dosage: 1 DF
     Route: 048
  2. WELLBUTRIN [Suspect]
     Active Substance: BUPROPION HYDROCHLORIDE
     Indication: DEPRESSED MOOD
     Dosage: TABLET (EXTENDED RELEASE), 1 DF
     Route: 048

REACTIONS (2)
  - Blood potassium decreased [Recovered/Resolved]
  - Electrocardiogram QT prolonged [Recovered/Resolved]
